FAERS Safety Report 21600653 (Version 3)
Quarter: 2023Q1

REPORT INFORMATION
  Report Type: Spontaneous
  Country: MX (occurrence: MX)
  Receive Date: 20221116
  Receipt Date: 20230120
  Transmission Date: 20230418
  Serious: Yes (Other)
  Sender: FDA-Public Use
  Company Number: MX-ORGANON-O2211MEX001127

PATIENT
  Sex: Female

DRUGS (1)
  1. ETONOGESTREL [Suspect]
     Active Substance: ETONOGESTREL
     Dosage: 1 IMPLANT
     Route: 059
     Dates: end: 20230102

REACTIONS (6)
  - Device dislocation [Recovered/Resolved]
  - Device issue [Recovered/Resolved]
  - Complication associated with device [Recovered/Resolved]
  - Complication of device removal [Recovered/Resolved]
  - Device placement issue [Recovered/Resolved]
  - Wrong technique in device usage process [Unknown]
